FAERS Safety Report 7264799-1 (Version None)
Quarter: 2011Q1

REPORT INFORMATION
  Report Type: 
  Country: None (occurrence: None)
  Receive Date: 20110131
  Receipt Date: 20110122
  Transmission Date: 20110831
  Serious: Yes (Hospitalization)
  Sender: FDA-Public Use
  Company Number: DE-US-EMD SERONO, INC.-7037471

PATIENT
  Sex: Female

DRUGS (3)
  1. LUMINAL [Concomitant]
  2. MARCUMAR [Concomitant]
  3. REBIF [Suspect]
     Indication: MULTIPLE SCLEROSIS

REACTIONS (3)
  - PARAESTHESIA [None]
  - BRONCHITIS [None]
  - PLEURISY [None]
